FAERS Safety Report 16345369 (Version 1)
Quarter: 2019Q2

REPORT INFORMATION
  Report Type: Spontaneous
  Country: US (occurrence: US)
  Receive Date: 20190523
  Receipt Date: 20190523
  Transmission Date: 20190711
  Serious: No
  Sender: FDA-Public Use
  Company Number: US-B.I. PHARMACEUTICALS,INC./RIDGEFIELD-2019-BI-022398

PATIENT
  Sex: Female

DRUGS (1)
  1. GILOTRIF [Suspect]
     Active Substance: AFATINIB
     Indication: PRODUCT USED FOR UNKNOWN INDICATION
     Dosage: ADMINISTRATION CORRECT? NR(NOT REPORTED) ?ACTION(S) TAKEN WITH PRODUCT: NOT REPORTED
     Route: 065

REACTIONS (5)
  - Stomatitis [Not Recovered/Not Resolved]
  - Epistaxis [Not Recovered/Not Resolved]
  - Diarrhoea [Not Recovered/Not Resolved]
  - Nail disorder [Not Recovered/Not Resolved]
  - Mouth haemorrhage [Not Recovered/Not Resolved]
